FAERS Safety Report 5252423-9 (Version None)
Quarter: 2007Q1

REPORT INFORMATION
  Report Type: 
  Country: None (occurrence: None)
  Receive Date: 20070301
  Receipt Date: 20061213
  Transmission Date: 20070707
  Serious: Yes (Hospitalization)
  Sender: FDA-Public Use
  Company Number: US-BRISTOL-MYERS SQUIBB COMPANY-13525134

PATIENT
  Age: 85 Year
  Sex: Female

DRUGS (4)
  1. ERBITUX [Suspect]
     Indication: NEOPLASM MALIGNANT
     Route: 042
     Dates: start: 20060706, end: 20060706
  2. BENADRYL [Concomitant]
  3. DECADRON [Concomitant]
  4. RADIATION THERAPY [Concomitant]
     Dates: end: 20060822

REACTIONS (1)
  - SKIN EXFOLIATION [None]
